FAERS Safety Report 24318980 (Version 2)
Quarter: 2024Q4

REPORT INFORMATION
  Report Type: Spontaneous
  Country: US (occurrence: US)
  Receive Date: 20240913
  Receipt Date: 20241025
  Transmission Date: 20250115
  Serious: No
  Sender: ALEXION PHARMACEUTICALS
  Company Number: US-AstraZeneca-CH-00700466A

PATIENT

DRUGS (4)
  1. KANUMA [Suspect]
     Active Substance: SEBELIPASE ALFA
     Indication: Lysosomal acid lipase deficiency
     Dosage: 5 MILLIGRAM/KILOGRAM, QW
  2. KANUMA [Suspect]
     Active Substance: SEBELIPASE ALFA
     Dosage: 5 MILLIGRAM/KILOGRAM, QW
  3. KANUMA [Suspect]
     Active Substance: SEBELIPASE ALFA
     Dosage: 5 MILLIGRAM/KILOGRAM, QW
  4. KANUMA [Suspect]
     Active Substance: SEBELIPASE ALFA
     Dosage: 5 MILLIGRAM/KILOGRAM, QW

REACTIONS (2)
  - Developmental delay [Unknown]
  - Weight decreased [Unknown]
